FAERS Safety Report 5692387-7 (Version None)
Quarter: 2008Q2

REPORT INFORMATION
  Report Type: 
  Country: None (occurrence: None)
  Receive Date: 20080402
  Receipt Date: 20070310
  Transmission Date: 20081010
  Serious: Yes (Other)
  Sender: FDA-Public Use
  Company Number: US-BAYER-US-2006-003545

PATIENT

DRUGS (1)
  1. LEUKINE [Suspect]
     Route: 050

REACTIONS (1)
  - ATRIAL FIBRILLATION [None]
